FAERS Safety Report 8791340 (Version 2)
Quarter: 2012Q4

REPORT INFORMATION
  Report Type: Spontaneous
  Country: US (occurrence: None)
  Receive Date: 20120912
  Receipt Date: 20120926
  Transmission Date: 20130627
  Serious: Yes (Hospitalization, Other)
  Sender: FDA-Public Use
  Company Number: 2012-001034

PATIENT
  Age: 57 Year
  Sex: Female

DRUGS (34)
  1. ACTONEL (RISEDRONATE SODIUM) TABLET, 35MG [Suspect]
     Route: 048
     Dates: start: 2003, end: 20040318
  2. ACTONEL (RISEDRONATE SODIUM) TABLET, 35MG [Suspect]
     Route: 048
     Dates: start: 2003, end: 20040318
  3. ACTONEL (RISEDRONATE SODIUM) TABLET, 35MG [Suspect]
     Route: 048
     Dates: start: 2003, end: 20040318
  4. ACTONEL [Suspect]
     Route: 048
     Dates: start: 20021105
  5. ACTONEL [Suspect]
     Route: 048
     Dates: start: 20021105
  6. ACTONEL [Suspect]
     Route: 048
     Dates: start: 20021105
  7. ACTONEL [Suspect]
     Route: 048
     Dates: start: 1998
  8. ACTONEL [Suspect]
     Route: 048
     Dates: start: 1998
  9. ACTONEL [Suspect]
     Route: 048
     Dates: start: 1998
  10. FOSAMAX (ALENDRONATE SODIUM) [Suspect]
     Route: 048
     Dates: start: 20040318, end: 200805
  11. FOSAMAX (ALENDRONATE SODIUM) [Suspect]
     Route: 048
     Dates: start: 20040318, end: 200805
  12. FOSAMAX (ALENDRONATE SODIUM) [Suspect]
     Route: 048
     Dates: start: 20040318, end: 200805
  13. ALENDRONATE SODIUM [Suspect]
     Route: 048
     Dates: start: 200805
  14. ALENDRONATE SODIUM [Suspect]
     Route: 048
     Dates: start: 200805
  15. ALENDRONATE SODIUM [Suspect]
     Route: 048
     Dates: start: 200805
  16. ALENDRONATE SODIUM [Suspect]
     Route: 048
     Dates: start: 201108
  17. ALENDRONATE SODIUM [Suspect]
     Route: 048
     Dates: start: 201108
  18. ALENDRONATE SODIUM [Suspect]
     Route: 048
     Dates: start: 201108
  19. CALCIUM WITH VITAMIN D /00944201/ (CALCIUM CARBONATE, COLECALCIFEROL) [Concomitant]
  20. TENORMIN (ATENOLOL) [Concomitant]
  21. VITAMIN E   /00110501/ (TOCOPHEROL) [Concomitant]
  22. NASONEX (MOMETASONE FUROATE) [Concomitant]
  23. ASPIRIN (ACETYLSALICYLIC ACID) [Concomitant]
  24. ALLEGRA (FEXOFENADINE HYDROCHLORIDE) [Concomitant]
  25. DARVOCET  /00758701/ (DEXTROPROPOXYPHENE NAPSILATE, PARACETAMOL) [Concomitant]
  26. TYLENOL ARTHRITIS (PARACETAMOL) [Concomitant]
  27. MULTIVITAMINS, PLAIN [Concomitant]
  28. GLUCOSAMINE CHONDROITIN /01625901/ (CHONDROITIN SULFATE, GLUCOSAMINE) [Concomitant]
  29. VIOXX (ROFECOXIB) [Concomitant]
  30. NORTRIPTYLINE HYDROCHLORIDE (NORTRIPTYLINE HYDROCHLORIDE) [Concomitant]
  31. NITROGLYCERIN (GLYCERYL TRINITRATE) [Concomitant]
  32. DURICEF (CEFADROXIL) [Concomitant]
  33. MAXAIR (PIRBUTEROL ACETATE) [Concomitant]
  34. GARLIC  /01570501/ (ALLIUM SATIVUM) [Concomitant]

REACTIONS (11)
  - Femur fracture [None]
  - Fracture displacement [None]
  - Atypical femur fracture [None]
  - Stress fracture [None]
  - Fall [None]
  - Pain in extremity [None]
  - Bone cyst [None]
  - Pain [None]
  - Osteogenesis imperfecta [None]
  - Bone disorder [None]
  - Low turnover osteopathy [None]
